FAERS Safety Report 9515027 (Version 2)
Quarter: 2013Q3

REPORT INFORMATION
  Report Type: Spontaneous
  Country: US (occurrence: None)
  Receive Date: 20130909
  Receipt Date: 20130917
  Transmission Date: 20140515
  Serious: Yes (Hospitalization, Other)
  Sender: FDA-Public Use
  Company Number: ACO_38283_2013

PATIENT
  Age: 59 Year
  Sex: Female

DRUGS (1)
  1. AMPYRA (DALFAMPRIDINE) TABLET, 10MG [Suspect]
     Indication: MULTIPLE SCLEROSIS
     Dosage: 10 MG, BID, UNKNOWN
     Route: 048

REACTIONS (4)
  - CSF test abnormal [None]
  - Spinal column stenosis [None]
  - Therapeutic response unexpected [None]
  - Drug dose omission [None]
